FAERS Safety Report 22246118 (Version 2)
Quarter: 2023Q2

REPORT INFORMATION
  Report Type: Spontaneous
  Country: US (occurrence: US)
  Receive Date: 20230424
  Receipt Date: 20230626
  Transmission Date: 20230721
  Serious: Yes (Hospitalization, Other)
  Sender: FDA-Public Use
  Company Number: US-PFIZER INC-PV202300070959

PATIENT
  Age: 62 Year
  Sex: Male

DRUGS (1)
  1. BOSULIF [Suspect]
     Active Substance: BOSUTINIB MONOHYDRATE
     Indication: Chronic myeloid leukaemia
     Dosage: 400 MG

REACTIONS (6)
  - White blood cell count increased [Unknown]
  - Second primary malignancy [Unknown]
  - Myeloproliferative neoplasm [Unknown]
  - Leukocytosis [Unknown]
  - Leukaemoid reaction [Unknown]
  - Hypoacusis [Unknown]
